FAERS Safety Report 7920264-7 (Version None)
Quarter: 2011Q4

REPORT INFORMATION
  Report Type: 
  Country: None (occurrence: None)
  Receive Date: 20111117
  Receipt Date: 20111111
  Transmission Date: 20120403
  Serious: Yes (Hospitalization)
  Sender: FDA-Public Use
  Company Number: US-SANOFI-AVENTIS-2011SA074813

PATIENT
  Age: 48 Year
  Sex: Female

DRUGS (7)
  1. HYDROCODONE BITARTRATE [Concomitant]
  2. SOLOSTAR [Suspect]
     Indication: TYPE 2 DIABETES MELLITUS
     Dates: start: 20110101
  3. DEMEROL [Concomitant]
  4. ALL OTHER THERAPEUTIC PRODUCTS [Concomitant]
  5. LANTUS [Suspect]
     Indication: TYPE 2 DIABETES MELLITUS
     Dosage: DOSE:30 UNIT(S)
     Route: 058
     Dates: start: 20110101
  6. MORPHINE [Concomitant]
  7. AMBIEN [Concomitant]
     Indication: SLEEP DISORDER

REACTIONS (3)
  - NEPHROLITHIASIS [None]
  - GOUT [None]
  - BLOOD GLUCOSE INCREASED [None]
